FAERS Safety Report 4792429-7 (Version None)
Quarter: 2005Q4

REPORT INFORMATION
  Report Type: 
  Country: None (occurrence: None)
  Receive Date: 20051010
  Receipt Date: 20041108
  Transmission Date: 20060501
  Serious: No
  Sender: FDA-Public Use
  Company Number: 200418218

PATIENT
  Age: 79 Year
  Sex: Female
  Weight: 70 kg

DRUGS (9)
  1. DIGOXIN [Suspect]
     Route: 065
  2. TELITHROMYCIN [Suspect]
     Indication: BRONCHITIS
     Dosage: 400MG PER DAY
     Route: 048
     Dates: start: 20041021, end: 20041025
  3. ADVAIR DISKUS 100/50 [Concomitant]
     Route: 055
  4. TYLENOL (CAPLET) [Concomitant]
  5. CALCIUM GLUCONATE [Concomitant]
  6. VITAMIN E [Concomitant]
  7. ASCORBIC ACID [Concomitant]
  8. ZANTAC [Concomitant]
  9. VITAMIN B6 [Concomitant]

REACTIONS (2)
  - CHEST PAIN [None]
  - DYSPNOEA [None]
